FAERS Safety Report 5510697-0 (Version None)
Quarter: 2007Q4

REPORT INFORMATION
  Report Type: 
  Country: None (occurrence: None)
  Receive Date: 20071107
  Receipt Date: 20070724
  Transmission Date: 20080405
  Serious: Yes (Other)
  Sender: FDA-Public Use
  Company Number: CHPA2007US08008

PATIENT
  Age: 78 Year
  Sex: Female
  Weight: 72.6 kg

DRUGS (6)
  1. FERROUS SULFATE TAB [Suspect]
     Indication: MINERAL SUPPLEMENTATION
     Dosage: 960 MG, QD FOR 2 DAYS, ORAL; 640 MG, QD FOR 2 DAYS, ORAL; ORAL
     Route: 048
     Dates: start: 20070101
  2. FERROUS SULFATE TAB [Suspect]
     Indication: MINERAL SUPPLEMENTATION
     Dosage: 960 MG, QD FOR 2 DAYS, ORAL; 640 MG, QD FOR 2 DAYS, ORAL; ORAL
     Route: 048
     Dates: start: 20070101
  3. FERROUS SULFATE TAB [Suspect]
     Indication: MINERAL SUPPLEMENTATION
     Dosage: 960 MG, QD FOR 2 DAYS, ORAL; 640 MG, QD FOR 2 DAYS, ORAL; ORAL
     Route: 048
     Dates: start: 20070101
  4. CALCIUM (CALCIUM) [Concomitant]
  5. SYNTHROID [Concomitant]
  6. ALL OTHER THERAPEUTIC PRODUCTS (NO INGREDIENTS/SUBSTANCES) [Concomitant]

REACTIONS (8)
  - ANXIETY [None]
  - CRYING [None]
  - HEART RATE INCREASED [None]
  - INSOMNIA [None]
  - MEDICATION ERROR [None]
  - MUSCLE TWITCHING [None]
  - NERVOUSNESS [None]
  - OVERDOSE [None]
